FAERS Safety Report 5926129-4 (Version None)
Quarter: 2008Q4

REPORT INFORMATION
  Report Type: 
  Country: None (occurrence: None)
  Receive Date: 20081016
  Receipt Date: 20080424
  Transmission Date: 20090506
  Serious: Yes (Disabling)
  Sender: FDA-Public Use
  Company Number: 805#8#2008-00012

PATIENT
  Age: 69 Year
  Sex: Male

DRUGS (2)
  1. PROSTANDIN-I.V. (ALPROSTADIL (PRAD)) [Suspect]
     Indication: PERIPHERAL REVASCULARISATION
     Dosage: 60 MG INTRAVENOUS DRIP
     Route: 041
     Dates: start: 20031015, end: 20031016
  2. CEFAZOLIN SODIUM HYDRATE (CEFAZOLIN SODIUM) [Concomitant]

REACTIONS (3)
  - BLOOD PRESSURE DECREASED [None]
  - CEREBRAL INFARCTION [None]
  - THROMBOSIS [None]
